FAERS Safety Report 9869301 (Version 1)
Quarter: 2014Q1

REPORT INFORMATION
  Report Type: Report from Study
  Country: AR (occurrence: AR)
  Receive Date: 20140205
  Receipt Date: 20140205
  Transmission Date: 20141002
  Serious: Yes (Hospitalization)
  Sender: FDA-Public Use
  Company Number: PHHY2014AR013463

PATIENT
  Sex: Female

DRUGS (2)
  1. TOBRAMYCIN INHALATION POWDER [Suspect]
     Indication: CYSTIC FIBROSIS
     Dosage: 8 DF, DAILY
     Route: 055
     Dates: start: 2011, end: 201312
  2. COLISTIN [Concomitant]
     Indication: CYSTIC FIBROSIS
     Dosage: UNK UKN, UNK

REACTIONS (2)
  - Burkholderia infection [Recovered/Resolved]
  - Lung disorder [Recovered/Resolved]
